FAERS Safety Report 25391778 (Version 1)
Quarter: 2025Q2

REPORT INFORMATION
  Report Type: Spontaneous
  Country: ES (occurrence: ES)
  Receive Date: 20250603
  Receipt Date: 20250603
  Transmission Date: 20250717
  Serious: Yes (Other)
  Sender: MERCK SHARP & DOHME LLC
  Company Number: None

PATIENT
  Age: 75 Year
  Sex: Male
  Weight: 103 kg

DRUGS (1)
  1. KEYTRUDA [Suspect]
     Active Substance: PEMBROLIZUMAB
     Indication: Lung adenocarcinoma stage IV
     Dosage: 200 MG EVERY 3 WEEKS
     Route: 042
     Dates: start: 20230116, end: 20241029

REACTIONS (1)
  - Chronic papillomatous dermatitis [Recovering/Resolving]

NARRATIVE: CASE EVENT DATE: 20230116
